FAERS Safety Report 9765115 (Version 1)
Quarter: 2013Q4

REPORT INFORMATION
  Report Type: Spontaneous
  Country: US (occurrence: None)
  Receive Date: 20131213
  Receipt Date: 20131213
  Transmission Date: 20140711
  Serious: Yes (Other)
  Sender: FDA-Public Use
  Company Number: 2013SA030430

PATIENT
  Sex: Female

DRUGS (1)
  1. ICY HOT [Suspect]
     Indication: PRODUCT USED FOR UNKNOWN INDICATION

REACTIONS (5)
  - Multiple injuries [None]
  - Scar [None]
  - Product quality issue [None]
  - Economic problem [None]
  - Decreased activity [None]
